FAERS Safety Report 20080712 (Version 1)
Quarter: 2021Q4

REPORT INFORMATION
  Report Type: Spontaneous
  Country: US (occurrence: US)
  Receive Date: 20211117
  Receipt Date: 20211117
  Transmission Date: 20220303
  Serious: Yes (Hospitalization)
  Sender: FDA-Public Use
  Company Number: US-MYLANLABS-2021M1084397

PATIENT
  Age: 11 Year
  Sex: Male

DRUGS (10)
  1. BROMOCRIPTINE [Suspect]
     Active Substance: BROMOCRIPTINE
     Indication: Autonomic nervous system imbalance
     Route: 065
  2. DANTROLENE [Suspect]
     Active Substance: DANTROLENE
     Indication: Autonomic nervous system imbalance
     Route: 065
  3. FENTANYL [Suspect]
     Active Substance: FENTANYL
     Indication: Autonomic nervous system imbalance
     Route: 065
  4. CLONAZEPAM [Suspect]
     Active Substance: CLONAZEPAM
     Indication: Autonomic nervous system imbalance
     Route: 065
  5. METHADONE [Suspect]
     Active Substance: METHADONE HYDROCHLORIDE
     Indication: Autonomic nervous system imbalance
     Route: 065
  6. TRIHEXYPHENIDYL [Suspect]
     Active Substance: TRIHEXYPHENIDYL
     Indication: Autonomic nervous system imbalance
     Route: 065
  7. METHYLPREDNISOLONE [Concomitant]
     Active Substance: METHYLPREDNISOLONE
     Indication: Encephalitis
     Dosage: HIGH DOSE
     Route: 065
  8. IVIGLOB EX [Concomitant]
     Active Substance: HUMAN IMMUNOGLOBULIN G
     Indication: Encephalitis
     Route: 042
  9. RITUXIMAB [Concomitant]
     Active Substance: RITUXIMAB
     Indication: Encephalitis
     Route: 065
  10. PREDNISONE [Concomitant]
     Active Substance: PREDNISONE
     Indication: Encephalitis
     Route: 065

REACTIONS (1)
  - Drug ineffective [Unknown]
